FAERS Safety Report 11434631 (Version 1)
Quarter: 2015Q3

REPORT INFORMATION
  Report Type: Spontaneous
  Country: GB (occurrence: GB)
  Receive Date: 20150831
  Receipt Date: 20150831
  Transmission Date: 20151125
  Serious: Yes (Other)
  Sender: FDA-Public Use
  Company Number: PHHY2015GB100881

PATIENT
  Age: 69 Year
  Sex: Female
  Weight: 76.2 kg

DRUGS (2)
  1. CEFUROXIME. [Suspect]
     Active Substance: CEFUROXIME
     Indication: CATARACT OPERATION
     Route: 047
     Dates: start: 20150513
  2. WATER FOR INJECTION [Suspect]
     Active Substance: WATER
     Indication: CATARACT OPERATION
     Dosage: 1000 ML, UNK
     Route: 047
     Dates: start: 20150513

REACTIONS (1)
  - Corneal opacity [Unknown]

NARRATIVE: CASE EVENT DATE: 20150513
